FAERS Safety Report 7466786-7 (Version None)
Quarter: 2011Q2

REPORT INFORMATION
  Report Type: 
  Country: None (occurrence: None)
  Receive Date: 20110509
  Receipt Date: 20100831
  Transmission Date: 20111010
  Serious: No
  Sender: FDA-Public Use
  Company Number: US-ALEXION-A201001108

PATIENT
  Sex: Female

DRUGS (4)
  1. SOLIRIS [Suspect]
     Indication: PAROXYSMAL NOCTURNAL HAEMOGLOBINURIA
     Dosage: 600 MG OR 900 MG, Q2W
     Route: 042
     Dates: start: 20080601
  2. SOLIRIS [Suspect]
     Dosage: 21 DAY DOSING
  3. IRON IN COMBINATION WITH FOLIC ACID [Concomitant]
     Indication: ANAEMIA
     Dosage: 900 MG/1 MG QD
  4. RESTORIL                           /00393701/ [Concomitant]
     Indication: INSOMNIA
     Dosage: 15 MG, 5 TIMES PER WEEK
     Route: 048

REACTIONS (6)
  - ASTHENIA [None]
  - CHEST PAIN [None]
  - ARTHRALGIA [None]
  - FATIGUE [None]
  - MYALGIA [None]
  - ABDOMINAL PAIN [None]
